FAERS Safety Report 4668416-6 (Version None)
Quarter: 2005Q2

REPORT INFORMATION
  Report Type: 
  Country: None (occurrence: None)
  Receive Date: 20050523
  Receipt Date: 20050324
  Transmission Date: 20051028
  Serious: Yes (Hospitalization)
  Sender: FDA-Public Use
  Company Number: PHFR2005GB01340

PATIENT
  Age: 37 Year
  Sex: Male
  Weight: 80 kg

DRUGS (3)
  1. NEORAL [Suspect]
     Indication: PSORIASIS
     Dosage: UNK, UNK
     Route: 065
     Dates: start: 20041101, end: 20050319
  2. NEORAL [Suspect]
     Dosage: UNKNOWN
  3. SERTRALINE HCL [Concomitant]
     Indication: DEPRESSION
     Dosage: 100MG/DAY
     Route: 065

REACTIONS (7)
  - BLOOD CREATINE PHOSPHOKINASE INCREASED [None]
  - DECREASED APPETITE [None]
  - LETHARGY [None]
  - MYALGIA [None]
  - MYOPATHY TOXIC [None]
  - SLEEP DISORDER [None]
  - TREMOR [None]
